FAERS Safety Report 7935789-8 (Version None)
Quarter: 2011Q4

REPORT INFORMATION
  Report Type: 
  Country: None (occurrence: None)
  Receive Date: 20111123
  Receipt Date: 20111114
  Transmission Date: 20120403
  Serious: Yes (Other)
  Sender: FDA-Public Use
  Company Number: US-BAYER-201033385NA

PATIENT
  Age: 35 Year
  Sex: Female
  Weight: 98 kg

DRUGS (4)
  1. YAZ [Suspect]
     Indication: CONTRACEPTION
     Dosage: UNK
     Dates: start: 20060101, end: 20080101
  2. ETODOLAC [Concomitant]
     Dosage: 500 MG, BID
  3. YASMIN [Suspect]
     Indication: CONTRACEPTION
     Dosage: UNK
     Dates: start: 20060101, end: 20080101
  4. PAXIL CR [Concomitant]
     Dosage: 25 MG, OM

REACTIONS (4)
  - THROMBOPHLEBITIS SUPERFICIAL [None]
  - DEEP VEIN THROMBOSIS [None]
  - THROMBOSIS [None]
  - VENOUS INSUFFICIENCY [None]
